FAERS Safety Report 16033401 (Version 1)
Quarter: 2019Q1

REPORT INFORMATION
  Report Type: Spontaneous
  Country: GB (occurrence: GB)
  Receive Date: 20190305
  Receipt Date: 20190305
  Transmission Date: 20190418
  Serious: Yes (Hospitalization, Other)
  Sender: FDA-Public Use
  Company Number: GB-TEVA-2019-GB-1018147

PATIENT
  Age: 15 Year
  Sex: Male

DRUGS (6)
  1. METHADONE [Suspect]
     Active Substance: METHADONE HYDROCHLORIDE
     Route: 048
     Dates: start: 20190116
  2. KETAMINE [Suspect]
     Active Substance: KETAMINE
     Dosage: FREQ: ONCE
     Route: 048
     Dates: start: 20190116
  3. 4-METHYLMETHCATHINONE [Suspect]
     Active Substance: 4-METHYLETHCATHINONE
     Dosage: FREQ: ONCE
     Route: 048
     Dates: start: 20190116
  4. METAMFETAMINE [Suspect]
     Active Substance: METHAMPHETAMINE
     Dosage: FREQ: ONCE
     Route: 048
     Dates: start: 20190116
  5. FENTANYL. [Suspect]
     Active Substance: FENTANYL
     Dosage: FREQ: ONCE
     Route: 048
     Dates: start: 20190116
  6. METHYLENEDIOXYMETHAMPHETAMINE [Suspect]
     Active Substance: MIDOMAFETAMINE
     Dosage: FREQ: ONCE
     Route: 048
     Dates: start: 20190116

REACTIONS (1)
  - Agitation [Recovered/Resolved]

NARRATIVE: CASE EVENT DATE: 20190118
